FAERS Safety Report 7806704 (Version 3)
Quarter: 2014Q2

REPORT INFORMATION
  Report Type: Spontaneous
  Country: US (occurrence: US)
  Receive Date: 20110210
  Receipt Date: 20140609
  Transmission Date: 20141212
  Serious: No
  Sender: FDA-Public Use
  Company Number: US-ASTELLAS-2011US000519

PATIENT
  Age: 42 Year
  Sex: Male

DRUGS (19)
  1. PROGRAF [Suspect]
     Indication: RENAL TRANSPLANT
     Route: 048
     Dates: start: 20100125
  2. PROGRAF [Suspect]
     Route: 065
  3. CELLCEPT [Suspect]
     Indication: RENAL TRANSPLANT
     Route: 065
  4. NIFEDIPINE [Concomitant]
     Indication: BLOOD PRESSURE
     Route: 065
  5. VASOTEC [Concomitant]
     Indication: BLOOD PRESSURE
     Route: 065
  6. COREG [Concomitant]
     Indication: BLOOD PRESSURE
     Route: 065
  7. COREG [Concomitant]
     Indication: CARDIAC DISORDER
  8. XANAX [Concomitant]
     Indication: ANXIETY
     Dosage: 0.5 MG, THRICE DAILY
     Route: 065
  9. XANAX [Concomitant]
     Indication: PAIN
  10. ASPIRIN [Concomitant]
     Indication: CARDIAC DISORDER
     Route: 065
  11. PLAVIX [Concomitant]
     Indication: ANTICOAGULANT THERAPY
     Route: 065
  12. PREVACID [Concomitant]
     Indication: PEPTIC ULCER
     Route: 065
  13. PRAVASTATIN [Concomitant]
     Indication: BLOOD CHOLESTEROL
     Route: 065
  14. LOPID [Concomitant]
     Indication: BLOOD TRIGLYCERIDES INCREASED
     Route: 065
  15. FLEXERIL [Concomitant]
     Indication: BACK PAIN
     Route: 065
  16. NEURONTIN [Concomitant]
     Indication: NEUROPATHY PERIPHERAL
     Route: 065
  17. NOVOLOG [Concomitant]
     Indication: BLOOD GLUCOSE ABNORMAL
     Dosage: 11 U PLUS SLIDING SCALE, WITH MEALS
     Route: 065
  18. LANTUS [Concomitant]
     Indication: BLOOD GLUCOSE ABNORMAL
     Route: 065
  19. MYFORTIC [Concomitant]
     Indication: RENAL TRANSPLANT
     Route: 065

REACTIONS (9)
  - BK virus infection [Unknown]
  - BK virus infection [Unknown]
  - Cytomegalovirus infection [Recovered/Resolved]
  - Cytomegalovirus infection [Recovered/Resolved]
  - Immunosuppressant drug level increased [Unknown]
  - Upper respiratory tract infection [Unknown]
  - Blood creatinine increased [Unknown]
  - Diarrhoea [Unknown]
  - Malaise [Unknown]
